FAERS Safety Report 8051943-1 (Version None)
Quarter: 2012Q1

REPORT INFORMATION
  Report Type: 
  Country: None (occurrence: None)
  Receive Date: 20120118
  Receipt Date: 20120109
  Transmission Date: 20120608
  Serious: Yes (Death, Other)
  Sender: FDA-Public Use
  Company Number: PR-AMGEN-PRISP2011045905

PATIENT
  Age: 78 Year
  Sex: Male

DRUGS (7)
  1. LEVOX [Concomitant]
     Indication: HYPOTHYROIDISM
     Dosage: 50 UNK, UNK
  2. LASIX [Concomitant]
     Indication: HYPERTENSION
     Dosage: 20 UNK, UNK
  3. DENAPOL [Concomitant]
     Dosage: 100 UNK, UNK
  4. MICARDIS [Concomitant]
     Indication: HYPERTENSION
     Dosage: 80 UNK, QD
     Route: 048
  5. SYNTHROID [Concomitant]
  6. PROCRIT [Suspect]
     Indication: ANAEMIA
     Dosage: 40000 IU, UNK
     Dates: start: 20100825, end: 20100901
  7. PROCRIT [Suspect]

REACTIONS (13)
  - ABDOMINAL DISCOMFORT [None]
  - ANAEMIA [None]
  - PAIN [None]
  - BODY TEMPERATURE DECREASED [None]
  - EMOTIONAL DISTRESS [None]
  - NAUSEA [None]
  - ANXIETY [None]
  - FALL [None]
  - JOINT DISLOCATION [None]
  - URINE OUTPUT DECREASED [None]
  - FEELING OF DESPAIR [None]
  - PULMONARY EMBOLISM [None]
  - DIZZINESS [None]
